FAERS Safety Report 9024606 (Version 1)
Quarter: 2013Q1

REPORT INFORMATION
  Report Type: Spontaneous
  Country: BE (occurrence: BE)
  Receive Date: 20130121
  Receipt Date: 20130121
  Transmission Date: 20140127
  Serious: Yes (Hospitalization, Disabling, Other)
  Sender: FDA-Public Use
  Company Number: BE-009507513-1211BEL008792

PATIENT
  Age: 45 Year
  Sex: Female
  Weight: 63.5 kg

DRUGS (9)
  1. ISENTRESS [Suspect]
     Indication: ANTI-INFECTIVE THERAPY
     Dosage: UNK
     Route: 048
     Dates: start: 20120731, end: 20121125
  2. TRUVADA [Concomitant]
     Indication: ANTI-INFECTIVE THERAPY
     Dosage: UNK
     Dates: start: 20120731
  3. NORVIR [Concomitant]
     Indication: ANTI-INFECTIVE THERAPY
     Dosage: UNK
     Dates: start: 20120731
  4. PREZISTA [Concomitant]
     Indication: ANTI-INFECTIVE THERAPY
     Dosage: UNK
     Dates: start: 20120731
  5. VALCYTE [Concomitant]
     Indication: CYTOMEGALOVIRUS CHORIORETINITIS
     Dosage: 90MG, DAILY
     Route: 048
     Dates: start: 2009
  6. ELTHYRONE [Concomitant]
     Indication: HYPOTHYROIDISM
     Dosage: 50U, DAILY
     Route: 048
     Dates: start: 2007
  7. SULFAMETHOXAZOLE (+) TRIMETHOPRIM [Concomitant]
     Indication: ANTIFUNGAL PROPHYLAXIS
     Dosage: 800/160
     Route: 048
     Dates: start: 20120604, end: 20120912
  8. SULFAMETHOXAZOLE (+) TRIMETHOPRIM [Concomitant]
     Indication: TOXOPLASMOSIS PROPHYLAXIS
  9. LAMISIL (TERBINAFINE) [Concomitant]
     Indication: ONYCHOMYCOSIS
     Dosage: UNK
     Route: 048
     Dates: start: 20120825, end: 20120901

REACTIONS (3)
  - Rash maculo-papular [Recovered/Resolved]
  - Pruritus [Recovered/Resolved]
  - Diabetes mellitus [Unknown]
